FAERS Safety Report 9104008 (Version 1)
Quarter: 2013Q1

REPORT INFORMATION
  Report Type: Spontaneous
  Country: HU (occurrence: HU)
  Receive Date: 20130219
  Receipt Date: 20130219
  Transmission Date: 20140127
  Serious: Yes (Other)
  Sender: FDA-Public Use
  Company Number: HU-BAYER-2013-018490

PATIENT
  Age: 57 Year
  Sex: Female

DRUGS (3)
  1. BETAFERON [Suspect]
     Indication: MULTIPLE SCLEROSIS
     Dosage: UNK
     Route: 051
     Dates: start: 20120117, end: 20130115
  2. THEOSPIREX [Concomitant]
     Indication: BRONCHITIS CHRONIC
  3. TALLITON [Concomitant]
     Indication: HYPERTENSION

REACTIONS (1)
  - Invasive ductal breast carcinoma [Not Recovered/Not Resolved]
